FAERS Safety Report 21342432 (Version 12)
Quarter: 2024Q1

REPORT INFORMATION
  Report Type: Spontaneous
  Country: US (occurrence: US)
  Receive Date: 20220916
  Receipt Date: 20240319
  Transmission Date: 20240409
  Serious: Yes (Hospitalization)
  Sender: FDA-Public Use
  Company Number: US-PFIZER INC-PV202200063873

PATIENT
  Age: 72 Year
  Sex: Female

DRUGS (1)
  1. IBRANCE [Suspect]
     Active Substance: PALBOCICLIB
     Dosage: 125 MG, CYCLIC
     Route: 048

REACTIONS (6)
  - Bedridden [Unknown]
  - Walking disability [Unknown]
  - Arthritis [Unknown]
  - COVID-19 [Unknown]
  - Fatigue [Unknown]
  - Bronchitis [Unknown]
